FAERS Safety Report 4714274-0 (Version None)
Quarter: 2005Q3

REPORT INFORMATION
  Report Type: 
  Country: None (occurrence: None)
  Receive Date: 20050714
  Receipt Date: 20050628
  Transmission Date: 20060218
  Serious: Yes (Other)
  Sender: FDA-Public Use
  Company Number: JP-JNJFOC-20050604401

PATIENT
  Age: 64 Year
  Sex: Female

DRUGS (6)
  1. ITRIZOLE [Suspect]
     Route: 049
  2. ITRIZOLE [Suspect]
     Route: 049
  3. ITRIZOLE [Suspect]
     Indication: ONYCHOMYCOSIS
     Route: 049
  4. MAGNESIUM OXIDE [Concomitant]
     Indication: CONSTIPATION
     Route: 049
  5. ANASTROZOLE [Concomitant]
     Indication: BREAST CANCER
     Route: 049
  6. CEFPODOXIME PROXETIL [Concomitant]
     Indication: PARONYCHIA
     Route: 049

REACTIONS (4)
  - ALANINE AMINOTRANSFERASE INCREASED [None]
  - ASPARTATE AMINOTRANSFERASE INCREASED [None]
  - HEPATIC FUNCTION ABNORMAL [None]
  - WHITE BLOOD CELL COUNT DECREASED [None]
